FAERS Safety Report 7871781-X (Version None)
Quarter: 2011Q4

REPORT INFORMATION
  Report Type: 
  Country: None (occurrence: None)
  Receive Date: 20111029
  Receipt Date: 20110308
  Transmission Date: 20120403
  Serious: No
  Sender: FDA-Public Use
  Company Number: US-AMGEN-USASP2011013071

PATIENT
  Age: 72 Year
  Sex: Female

DRUGS (1)
  1. ENBREL [Suspect]
     Indication: PSORIASIS
     Dosage: 50 MG, 2 TIMES/WK
     Dates: start: 20101223

REACTIONS (9)
  - NAIL DISORDER [None]
  - STRESS [None]
  - HEPATIC ENZYME INCREASED [None]
  - INJECTION SITE REACTION [None]
  - NAIL DISCOLOURATION [None]
  - INSOMNIA [None]
  - DEPRESSION [None]
  - PSORIASIS [None]
  - FUNGAL INFECTION [None]
